FAERS Safety Report 9443217 (Version 1)
Quarter: 2013Q3

REPORT INFORMATION
  Report Type: Spontaneous
  Country: FR (occurrence: FR)
  Receive Date: 20130806
  Receipt Date: 20130806
  Transmission Date: 20140515
  Serious: Yes (Other)
  Sender: FDA-Public Use
  Company Number: FR-AMGEN-FRASP2013054444

PATIENT
  Sex: 0

DRUGS (2)
  1. FILGRASTIM [Suspect]
     Indication: ANAEMIA
     Dosage: 300 MCG, TWICE WEEKLY
     Route: 058
  2. DARBEPOETIN ALFA [Suspect]
     Indication: ANAEMIA
     Dosage: 500 MCG, EVERY TWO WEEKS
     Route: 058

REACTIONS (1)
  - Leukocytosis [Unknown]
